FAERS Safety Report 9483872 (Version 1)
Quarter: 2013Q3

REPORT INFORMATION
  Report Type: Spontaneous
  Country: US (occurrence: US)
  Receive Date: 20130828
  Receipt Date: 20130828
  Transmission Date: 20140515
  Serious: Yes (Other)
  Sender: FDA-Public Use
  Company Number: US-AMGEN-KDL346370

PATIENT
  Age: 46 Year
  Sex: Male

DRUGS (1)
  1. ENBREL [Suspect]
     Indication: PSORIASIS
     Dosage: UNK UNK, UNK
     Route: 065
     Dates: start: 20021129

REACTIONS (4)
  - Drug hypersensitivity [Not Recovered/Not Resolved]
  - Hernia [Unknown]
  - Rash generalised [Not Recovered/Not Resolved]
  - Pain [Unknown]
